FAERS Safety Report 4534367-0 (Version None)
Quarter: 2004Q4

REPORT INFORMATION
  Report Type: 
  Country: None (occurrence: None)
  Receive Date: 20041221
  Receipt Date: 20041221
  Transmission Date: 20050328
  Serious: Yes (Hospitalization)
  Sender: FDA-Public Use
  Company Number: None

PATIENT
  Age: 45 Year
  Sex: Male

DRUGS (7)
  1. CISPLATIN [Suspect]
     Indication: OESOPHAGEAL CARCINOMA
     Dosage: 30 MG/M2 WK 1,2,4, 5 IV
     Route: 042
     Dates: start: 20041109
  2. IRINTECAN [Suspect]
     Indication: OESOPHAGEAL CARCINOMA
     Dosage: 65 MG/MS WK 1,2,4, 5 IV
     Route: 042
     Dates: start: 20041109
  3. CETUXIMAB [Suspect]
     Indication: OESOPHAGEAL CARCINOMA
     Dosage: 250 MG/M2 WK 1-9 IV
     Route: 042
     Dates: start: 20041102
  4. XRT [Suspect]
     Indication: OESOPHAGEAL CARCINOMA
     Dosage: 50.4 GY D 1-28
     Dates: start: 20041109
  5. PROTONIX [Concomitant]
  6. TUMS [Concomitant]
  7. ELIDEL TRANSDERMAL [Concomitant]

REACTIONS (7)
  - BODY TEMPERATURE INCREASED [None]
  - FEBRILE NEUTROPENIA [None]
  - NEUTROPENIA [None]
  - NEUTROPHIL COUNT DECREASED [None]
  - POST PROCEDURAL COMPLICATION [None]
  - POST PROCEDURAL NAUSEA [None]
  - POST PROCEDURAL VOMITING [None]
